FAERS Safety Report 4789324-6 (Version None)
Quarter: 2005Q3

REPORT INFORMATION
  Report Type: 
  Country: None (occurrence: None)
  Receive Date: 20050929
  Receipt Date: 20050808
  Transmission Date: 20060218
  Serious: No
  Sender: FDA-Public Use
  Company Number: 05P-163-0307824-00

PATIENT
  Age: 81 Year
  Sex: Male
  Weight: 69.8539 kg

DRUGS (4)
  1. HUMIRA [Suspect]
     Indication: RHEUMATOID ARTHRITIS
     Dosage: 40 MG, 1 IN 2 WK, SUBCUTANEOUS
     Route: 058
     Dates: start: 20040101
  2. CYANOCOBALAMIN [Concomitant]
  3. FISH OIL [Concomitant]
  4. PYRIDOXINE HYDROCHLORIDE [Concomitant]

REACTIONS (1)
  - OEDEMA PERIPHERAL [None]
